FAERS Safety Report 24113545 (Version 1)
Quarter: 2024Q3

REPORT INFORMATION
  Report Type: Spontaneous
  Country: US (occurrence: US)
  Receive Date: 20240720
  Receipt Date: 20240720
  Transmission Date: 20241017
  Serious: Yes (Hospitalization)
  Sender: JOHNSON AND JOHNSON
  Company Number: US-JNJFOC-20240723494

PATIENT
  Age: 31 Year
  Sex: Female

DRUGS (1)
  1. LISTERINE ULTRACLEAN ANTISEPTIC COOL MINT [Suspect]
     Active Substance: EUCALYPTOL\MENTHOL\METHYL SALICYLATE\THYMOL
     Indication: Dental disorder prophylaxis
     Route: 048
     Dates: start: 20240701

REACTIONS (3)
  - Taste disorder [Not Recovered/Not Resolved]
  - Eating disorder [Not Recovered/Not Resolved]
  - Application site pain [Not Recovered/Not Resolved]

NARRATIVE: CASE EVENT DATE: 20240701
